FAERS Safety Report 25214034 (Version 2)
Quarter: 2025Q2

REPORT INFORMATION
  Report Type: Spontaneous
  Country: US (occurrence: US)
  Receive Date: 20250418
  Receipt Date: 20250424
  Transmission Date: 20250716
  Serious: No
  Sender: PFIZER
  Company Number: US-PFIZER INC-202500076280

PATIENT
  Age: 26 Year
  Sex: Male

DRUGS (3)
  1. CIBINQO [Suspect]
     Active Substance: ABROCITINIB
     Indication: Eczema
     Dosage: 200 MG, 1X/DAY
     Dates: start: 2025
  2. CIBINQO [Suspect]
     Active Substance: ABROCITINIB
     Indication: Dermatitis atopic
  3. CIBINQO [Suspect]
     Active Substance: ABROCITINIB
     Indication: Rash

REACTIONS (2)
  - Condition aggravated [Unknown]
  - Product dose omission issue [Unknown]
